FAERS Safety Report 23685968 (Version 4)
Quarter: 2025Q2

REPORT INFORMATION
  Report Type: Spontaneous
  Country: JP (occurrence: JP)
  Receive Date: 20240329
  Receipt Date: 20250624
  Transmission Date: 20250717
  Serious: Yes (Death, Other)
  Sender: GLAXOSMITHKLINE
  Company Number: JP-GSKJP-JP2024JPN039517AA

PATIENT
  Age: 84 Year
  Sex: Male
  Weight: 64.5 kg

DRUGS (14)
  1. DAPRODUSTAT [Suspect]
     Active Substance: DAPRODUSTAT
     Indication: Nephrogenic anaemia
     Dosage: 4 MG, 1D
     Dates: start: 20210617
  2. DAPRODUSTAT [Suspect]
     Active Substance: DAPRODUSTAT
     Dosage: 6 MG, 1D
     Dates: start: 20210708
  3. DAPRODUSTAT [Suspect]
     Active Substance: DAPRODUSTAT
     Dosage: 8 MG, 1D
  4. ALLOPURINOL [Concomitant]
     Active Substance: ALLOPURINOL
     Dosage: 50 MG, QD
  5. MITIGLINIDE [Concomitant]
     Active Substance: MITIGLINIDE
     Indication: Diabetes mellitus
     Dosage: 10 MG, TID
  6. Diart [Concomitant]
     Dosage: 60 MG, 1D, IN THE MORNING
  7. ADALAT [Concomitant]
     Active Substance: NIFEDIPINE
  8. LANSOPRAZOLE [Concomitant]
     Active Substance: LANSOPRAZOLE
     Dosage: 15 MG, 1D, AFTER EVENING
  9. CILOSTAZOL [Concomitant]
     Active Substance: CILOSTAZOL
     Dosage: 100 MG, BID, IN THE MORNING AND EVENING
  10. AZILSARTAN KAMEDOXOMIL [Concomitant]
     Active Substance: AZILSARTAN KAMEDOXOMIL
     Indication: Hypertension
     Dosage: 10 MG, BID, IN THE MORNING AND EVENING, ONLY ON NON-HD DAY
  11. Uralyt [Concomitant]
     Dosage: 1 DF, 1D, AFTER EVENING
  12. FOSRENOL [Concomitant]
     Active Substance: LANTHANUM CARBONATE
     Indication: Hyperphosphataemia
     Dosage: 1 DF, BID, AFTER NOON AND EVENING, DOSE: 250
  13. MAGNESIUM OXIDE [Concomitant]
     Active Substance: MAGNESIUM OXIDE
  14. NICORANDIL [Concomitant]
     Active Substance: NICORANDIL
     Indication: Cardiac failure congestive
     Dosage: 1 DF, TID, AFTER EVERY MEAL, DOSE 2.5

REACTIONS (6)
  - Sudden death [Fatal]
  - Cardiac failure congestive [Fatal]
  - Cardiac arrest [Fatal]
  - Haemoglobin decreased [Unknown]
  - Supraventricular extrasystoles [Unknown]
  - Fluid retention [Unknown]

NARRATIVE: CASE EVENT DATE: 20220228
